FAERS Safety Report 4617149-0 (Version None)
Quarter: 2005Q1

REPORT INFORMATION
  Report Type: 
  Country: None (occurrence: None)
  Receive Date: 20050323
  Receipt Date: 20050314
  Transmission Date: 20050727
  Serious: Yes (Disabling)
  Sender: FDA-Public Use
  Company Number: JP-BRISTOL-MYERS SQUIBB COMPANY-12898482

PATIENT
  Age: 35 Year
  Sex: Female

DRUGS (2)
  1. TAXOL [Suspect]
     Indication: PERITONEAL CARCINOMA
     Route: 042
  2. CARBOMERCK [Suspect]
     Indication: PERITONEAL CARCINOMA
     Dosage: AUC=5
     Route: 042

REACTIONS (1)
  - HEPATIC CIRRHOSIS [None]
